FAERS Safety Report 13489531 (Version 2)
Quarter: 2017Q2

REPORT INFORMATION
  Report Type: Spontaneous
  Country: US (occurrence: US)
  Receive Date: 20170427
  Receipt Date: 20170516
  Transmission Date: 20170830
  Serious: Yes (Death, Other)
  Sender: FDA-Public Use
  Company Number: US-PFIZER INC-2017181360

PATIENT
  Age: 71 Year
  Sex: Female

DRUGS (2)
  1. VFEND [Suspect]
     Active Substance: VORICONAZOLE
     Indication: PNEUMONIA FUNGAL
     Dosage: 200 MG, 2X/DAY
     Dates: start: 201703, end: 20170422
  2. DEXAMETHASONE. [Concomitant]
     Active Substance: DEXAMETHASONE
     Dosage: UNK
     Dates: start: 20170320

REACTIONS (1)
  - Leukaemia [Fatal]
